FAERS Safety Report 5611704-7 (Version None)
Quarter: 2008Q1

REPORT INFORMATION
  Report Type: 
  Country: None (occurrence: None)
  Receive Date: 20080201
  Receipt Date: 20080125
  Transmission Date: 20080703
  Serious: Yes (Other)
  Sender: FDA-Public Use
  Company Number: JP-MERCK-0801USA05663

PATIENT
  Age: 84 Year
  Sex: Female

DRUGS (3)
  1. PEPCID [Suspect]
     Indication: GASTRITIS
     Route: 048
     Dates: start: 20060801
  2. ASPIRIN [Concomitant]
     Route: 048
     Dates: start: 20060801
  3. YODEL S [Concomitant]
     Route: 048
     Dates: start: 20060801

REACTIONS (1)
  - LOSS OF CONSCIOUSNESS [None]
